FAERS Safety Report 8066691-1 (Version None)
Quarter: 2012Q1

REPORT INFORMATION
  Report Type: 
  Country: None (occurrence: None)
  Receive Date: 20120124
  Receipt Date: 20120116
  Transmission Date: 20120608
  Serious: Yes (Life-Threatening, Hospitalization, Other)
  Sender: FDA-Public Use
  Company Number: US-BAYER-2011-082360

PATIENT
  Age: 29 Year
  Sex: Female
  Weight: 60.317 kg

DRUGS (5)
  1. YAZ [Suspect]
     Indication: CONTRACEPTION
     Dosage: UNK
     Dates: start: 20090701, end: 20100501
  2. XANAX [Concomitant]
     Indication: ANXIETY
  3. IBUPROFEN (ADVIL) [Concomitant]
     Dosage: UNK
     Route: 048
     Dates: end: 20100101
  4. ZALEPON [Concomitant]
     Dosage: 10 MG, UNK
     Dates: start: 20100223, end: 20100419
  5. YASMIN [Suspect]
     Indication: DYSMENORRHOEA
     Dosage: UNK
     Dates: start: 20060101

REACTIONS (14)
  - OEDEMA PERIPHERAL [None]
  - PAIN IN EXTREMITY [None]
  - VASODILATATION [None]
  - INJECTION SITE SCAR [None]
  - PAIN [None]
  - EMOTIONAL DISTRESS [None]
  - DYSPNOEA [None]
  - DEEP VEIN THROMBOSIS [None]
  - INJURY [None]
  - ANXIETY [None]
  - PULMONARY EMBOLISM [None]
  - WEIGHT INCREASED [None]
  - MYOCARDIAL INFARCTION [None]
  - ANHEDONIA [None]
